FAERS Safety Report 7746613-0 (Version None)
Quarter: 2011Q3

REPORT INFORMATION
  Report Type: 
  Country: None (occurrence: None)
  Receive Date: 20110913
  Receipt Date: 20110909
  Transmission Date: 20111222
  Serious: Yes (Life-Threatening, Hospitalization)
  Sender: FDA-Public Use
  Company Number: HR-ASTRAZENECA-2011SE43594

PATIENT
  Age: 10085 Day
  Sex: Female
  Weight: 50 kg

DRUGS (9)
  1. CLONAZEPAM [Concomitant]
     Route: 048
     Dates: start: 20110821
  2. CLONAZEPAM [Concomitant]
     Indication: SCHIZOPHRENIA
     Route: 048
     Dates: start: 20110401, end: 20110717
  3. ZOLPIDEM TARTRATE [Concomitant]
     Indication: SCHIZOPHRENIA
     Route: 048
     Dates: start: 20110401, end: 20110717
  4. SEROQUEL XR [Suspect]
     Dosage: 53 TABLETS OF 400 MG
     Route: 048
     Dates: start: 20110717
  5. CLONAZEPAM [Concomitant]
     Indication: ANXIETY
     Route: 048
     Dates: start: 20110401, end: 20110717
  6. MODITEN DEPO [Concomitant]
     Indication: SCHIZOPHRENIA
     Route: 042
     Dates: start: 20110401
  7. NOZINAN [Concomitant]
     Indication: SCHIZOPHRENIA
     Route: 048
     Dates: start: 20110401, end: 20110717
  8. SEROQUEL XR [Suspect]
     Indication: SCHIZOPHRENIA
     Dosage: 800 MG IN THE EVENING
     Route: 048
     Dates: start: 20110101, end: 20110717
  9. CLONAZEPAM [Concomitant]
     Route: 048
     Dates: start: 20110821

REACTIONS (4)
  - EPISTAXIS [None]
  - SUICIDE ATTEMPT [None]
  - COMA [None]
  - OVERDOSE [None]
